FAERS Safety Report 9257588 (Version 5)
Quarter: 2014Q1

REPORT INFORMATION
  Report Type: Spontaneous
  Country: GB (occurrence: GB)
  Receive Date: 20130426
  Receipt Date: 20140121
  Transmission Date: 20141002
  Serious: Yes (Death, Hospitalization)
  Sender: FDA-Public Use
  Company Number: GB-JNJFOC-20130413286

PATIENT
  Sex: Female

DRUGS (1)
  1. STELARA [Suspect]
     Indication: PSORIASIS
     Dosage: ONCE IN 10 TO 12 WEEKS
     Route: 058
     Dates: start: 20120608, end: 20130214

REACTIONS (3)
  - Alcoholic liver disease [Fatal]
  - Pneumonia [Fatal]
  - Ascites [Unknown]
